FAERS Safety Report 4528663-0 (Version None)
Quarter: 2004Q4

REPORT INFORMATION
  Report Type: 
  Country: None (occurrence: None)
  Receive Date: 20041216
  Receipt Date: 20041115
  Transmission Date: 20050328
  Serious: Yes (Disabling)
  Sender: FDA-Public Use
  Company Number: US-MERCK-0411USA02629

PATIENT
  Age: 80 Year
  Sex: Female
  Weight: 78 kg

DRUGS (6)
  1. VIOXX [Suspect]
     Indication: OSTEOARTHRITIS
     Route: 048
     Dates: start: 20011101, end: 20040930
  2. DILTIAZEM HYDROCHLORIDE [Concomitant]
     Route: 065
  3. CARTIA XT [Concomitant]
     Route: 065
  4. TYLENOL (CAPLET) [Concomitant]
     Route: 065
  5. KLONOPIN [Concomitant]
     Indication: RESTLESS LEGS SYNDROME
     Route: 065
  6. PRAVACHOL [Concomitant]
     Indication: HYPERCHOLESTEROLAEMIA
     Route: 065

REACTIONS (3)
  - ATRIAL FIBRILLATION [None]
  - DYSPNOEA [None]
  - OSTEOPENIA [None]
